FAERS Safety Report 6078435-3 (Version None)
Quarter: 2009Q1

REPORT INFORMATION
  Report Type: 
  Country: None (occurrence: None)
  Receive Date: 20090213
  Receipt Date: 20090202
  Transmission Date: 20090719
  Serious: Yes (Disabling)
  Sender: FDA-Public Use
  Company Number: IPS_01457_2009

PATIENT
  Age: 70 Year
  Sex: Male

DRUGS (2)
  1. APOKYN [Suspect]
     Indication: PARKINSON'S DISEASE
     Dosage: (0.2 ML, NO MORE THAN THREE TIMES PER DAY SUBCUTANEOUS)
     Route: 058
     Dates: start: 20081101, end: 20090101
  2. APOKYN [Suspect]
     Indication: PARKINSON'S DISEASE
     Dosage: (0.2 ML, NO MORE THAN THREE TIMES PER DAY SUBCUTANEOUS)
     Route: 058
     Dates: start: 20090202

REACTIONS (1)
  - FREEZING PHENOMENON [None]
